FAERS Safety Report 4553748-2 (Version None)
Quarter: 2005Q1

REPORT INFORMATION
  Report Type: 
  Country: None (occurrence: None)
  Receive Date: 20050114
  Receipt Date: 20050114
  Transmission Date: 20050727
  Serious: Yes (Hospitalization)
  Sender: FDA-Public Use
  Company Number: None

PATIENT
  Age: 79 Year
  Sex: Male
  Weight: 65.953 kg

DRUGS (11)
  1. DOXORUBICIN HCL [Suspect]
     Indication: PROSTATE CANCER METASTATIC
     Dosage: 20MG/M2  QOW-1,3, INTRAVENOUS  5X2 CYC
     Route: 042
     Dates: start: 20041221, end: 20041221
  2. VINBLASTINE SULFATE [Suspect]
     Indication: PROSTATE CANCER METASTATIC
     Dosage: 4MG/M2  QOW-2,4,6 INTRAVENOUS X2CYC
     Route: 042
     Dates: start: 20041228, end: 20041228
  3. KETOCONAZOLE [Concomitant]
  4. ESTRAMUSTINE [Concomitant]
  5. COMPAZINE [Concomitant]
  6. HYDROCORTISONE [Concomitant]
  7. ASPIRIN [Concomitant]
  8. FLOMAX [Concomitant]
  9. MOTRIN [Concomitant]
  10. LUPRON [Concomitant]
  11. ZOMETA [Concomitant]

REACTIONS (29)
  - ALANINE AMINOTRANSFERASE INCREASED [None]
  - ANAEMIA [None]
  - ANOREXIA [None]
  - ASPARTATE AMINOTRANSFERASE INCREASED [None]
  - BLOOD BILIRUBIN INCREASED [None]
  - BLOOD CREATININE INCREASED [None]
  - BLOOD LACTATE DEHYDROGENASE INCREASED [None]
  - BONE PAIN [None]
  - COUGH [None]
  - DEHYDRATION [None]
  - DUODENAL ULCER [None]
  - DYSPNOEA [None]
  - EPIGASTRIC DISCOMFORT [None]
  - FATIGUE [None]
  - FEBRILE NEUTROPENIA [None]
  - HYPERGLYCAEMIA [None]
  - HYPOALBUMINAEMIA [None]
  - HYPOCALCAEMIA [None]
  - HYPOKALAEMIA [None]
  - HYPOMAGNESAEMIA [None]
  - HYPONATRAEMIA [None]
  - HYPOPHOSPHATAEMIA [None]
  - LEUKOPENIA [None]
  - NAUSEA [None]
  - OESOPHAGEAL ULCER [None]
  - PEPTIC ULCER [None]
  - PROTEIN TOTAL DECREASED [None]
  - THROMBOCYTOPENIA [None]
  - WEIGHT DECREASED [None]
